FAERS Safety Report 14613817 (Version 1)
Quarter: 2018Q1

REPORT INFORMATION
  Report Type: Spontaneous
  Country: US (occurrence: US)
  Receive Date: 20180308
  Receipt Date: 20180308
  Transmission Date: 20180509
  Serious: Yes (Hospitalization)
  Sender: FDA-Public Use
  Company Number: None

PATIENT
  Age: 32 Year
  Sex: Male
  Weight: 86.18 kg

DRUGS (1)
  1. KRATOM [Suspect]
     Active Substance: MITRAGYNINE\HERBALS
     Indication: DRUG REHABILITATION
     Dates: start: 2016, end: 2018

REACTIONS (4)
  - Drug dependence [None]
  - Asthenia [None]
  - Seizure [None]
  - Panic attack [None]

NARRATIVE: CASE EVENT DATE: 20160108
